FAERS Safety Report 13433060 (Version 2)
Quarter: 2017Q2

REPORT INFORMATION
  Report Type: Spontaneous
  Country: BE (occurrence: BE)
  Receive Date: 20170412
  Receipt Date: 20170419
  Transmission Date: 20170830
  Serious: Yes (Hospitalization, Other)
  Sender: FDA-Public Use
  Company Number: BE-PFIZER INC-2017152433

PATIENT
  Age: 53 Year
  Sex: Female

DRUGS (4)
  1. MORPHINE SULFATE. [Suspect]
     Active Substance: MORPHINE SULFATE
     Indication: AMPUTATION STUMP PAIN
  2. CLONIDINE. [Concomitant]
     Active Substance: CLONIDINE
     Indication: PHANTOM PAIN
     Dosage: 2.4 MG/ML, DOSE RANGED BETWEEN 630 AND 780 MCG/DAY
     Route: 037
  3. MORPHINE SULFATE. [Suspect]
     Active Substance: MORPHINE SULFATE
     Indication: PHANTOM PAIN
     Dosage: 10 MG/ML, DOSE RANGED BETWEEN 2.2 AND 3.6 MG/DAY
     Route: 037
  4. CLONIDINE. [Concomitant]
     Active Substance: CLONIDINE
     Indication: AMPUTATION STUMP PAIN

REACTIONS (1)
  - Ependymoma [Recovered/Resolved]
